FAERS Safety Report 8360851-8 (Version None)
Quarter: 2012Q2

REPORT INFORMATION
  Report Type: 
  Country: None (occurrence: None)
  Receive Date: 20120515
  Receipt Date: 20120509
  Transmission Date: 20120825
  Serious: Yes (Other)
  Sender: FDA-Public Use
  Company Number: BR-ABBOTT-11P-020-0883536-00

PATIENT
  Sex: Female
  Weight: 74.4 kg

DRUGS (15)
  1. FLUOXETINE [Concomitant]
     Indication: ANXIETY
  2. CYCLOBENZAPRINE [Concomitant]
     Indication: PAIN
     Route: 048
  3. PREDNISONE TAB [Concomitant]
     Indication: PAIN
     Route: 048
  4. PLANTABEN [Concomitant]
     Indication: CONSTIPATION
     Route: 048
  5. CODEINE [Concomitant]
     Indication: PAIN
     Route: 048
  6. FLUOXETINE [Concomitant]
     Indication: AFFECTIVE DISORDER
     Dosage: 1 TABLET DAILY
     Route: 048
     Dates: start: 20110801
  7. CORTISONE ACETATE [Concomitant]
     Indication: INFLAMMATION
     Route: 048
  8. HUMIRA [Suspect]
     Indication: RHEUMATOID ARTHRITIS
     Route: 058
     Dates: start: 20101201
  9. ACETAMINOPHEN [Concomitant]
     Indication: PAIN
     Route: 048
  10. PRILOSEC [Concomitant]
     Indication: GASTRIC DISORDER
     Route: 048
  11. TIBOLONE [Concomitant]
     Indication: HORMONE THERAPY
     Route: 048
  12. FAMOTIDINE [Concomitant]
     Indication: PAIN
     Route: 048
  13. NOVIC [Concomitant]
     Indication: MUSCLE RELAXANT THERAPY
     Route: 048
  14. TIMOLOL MALEATE [Concomitant]
     Indication: PAIN
     Route: 048
  15. ACETAMINOPHEN W/ CODEINE [Concomitant]
     Indication: RHEUMATOID ARTHRITIS
     Dosage: 30MG+40MG+300MG+5MG: DAILY
     Route: 048

REACTIONS (18)
  - WEIGHT INCREASED [None]
  - INTERVERTEBRAL DISC PROTRUSION [None]
  - ARTHRITIS [None]
  - VISUAL IMPAIRMENT [None]
  - FINGER DEFORMITY [None]
  - FEELING ABNORMAL [None]
  - MUSCLE SPASMS [None]
  - FATIGUE [None]
  - INTERVERTEBRAL DISC DISPLACEMENT [None]
  - BEDRIDDEN [None]
  - EYE SWELLING [None]
  - ABASIA [None]
  - ARTHRALGIA [None]
  - PAIN [None]
  - LACRIMATION INCREASED [None]
  - OCULAR HYPERAEMIA [None]
  - HYPOAESTHESIA [None]
  - RHEUMATOID NODULE [None]
